FAERS Safety Report 17505271 (Version 1)
Quarter: 2020Q1

REPORT INFORMATION
  Report Type: Spontaneous
  Country: US (occurrence: US)
  Receive Date: 20200305
  Receipt Date: 20200305
  Transmission Date: 20200409
  Serious: Yes (Other)
  Sender: FDA-Public Use
  Company Number: US-BAUSCH-BL-2020-005949

PATIENT
  Age: 31 Year
  Sex: Female

DRUGS (11)
  1. NIFEDIPINE. [Suspect]
     Active Substance: NIFEDIPINE
     Indication: TOCOLYSIS
     Dosage: 2 ORAL DOSES OF SHORT-ACTING NIFEDIPINE (20 MG FOLLOWED BY 10 MG) OVER 30 MINUTES
     Route: 048
  2. NOREPINEPHRINE. [Suspect]
     Active Substance: NOREPINEPHRINE
     Dosage: PATIENT^S PRESSORS WERE WEANED OFF
     Route: 065
  3. CALCIUM GLUCONATE. [Suspect]
     Active Substance: CALCIUM GLUCONATE
     Dosage: PATIENT^S PRESSORS WERE WEANED OFF
     Route: 065
  4. INDOMETHACIN. [Suspect]
     Active Substance: INDOMETHACIN
     Indication: TOCOLYSIS
     Route: 065
  5. NIFEDIPINE. [Suspect]
     Active Substance: NIFEDIPINE
     Indication: PROPHYLAXIS
     Dosage: 2 ORAL DOSES OF SHORT-ACTING NIFEDIPINE (20 MG FOLLOWED BY 10 MG) OVER 30 MINUTES
     Route: 048
  6. PHENYLEPHRINE [Suspect]
     Active Substance: PHENYLEPHRINE HYDROCHLORIDE
     Indication: HYPOTENSION
     Route: 042
  7. LACTATED RINGERS SOLUTION [Suspect]
     Active Substance: CALCIUM CHLORIDE\POTASSIUM CHLORIDE\SODIUM CHLORIDE\SODIUM LACTATE
     Dosage: PATIENT^S PRESSORS WERE WEANED OFF
     Route: 065
  8. LACTATED RINGERS SOLUTION [Suspect]
     Active Substance: CALCIUM CHLORIDE\POTASSIUM CHLORIDE\SODIUM CHLORIDE\SODIUM LACTATE
     Indication: HYPOTENSION
     Route: 065
  9. CALCIUM GLUCONATE. [Suspect]
     Active Substance: CALCIUM GLUCONATE
     Indication: HYPOTENSION
     Route: 065
  10. INDOMETHACIN. [Suspect]
     Active Substance: INDOMETHACIN
     Dosage: PATIENT^S PRESSORS WERE WEANED OFF
     Route: 065
  11. NOREPINEPHRINE. [Suspect]
     Active Substance: NOREPINEPHRINE
     Indication: HYPOTENSION
     Route: 065

REACTIONS (2)
  - Shock [Recovered/Resolved]
  - Maternal exposure during pregnancy [Unknown]
